FAERS Safety Report 8888417 (Version 1)
Quarter: 2012Q4

REPORT INFORMATION
  Report Type: 
  Country: US (occurrence: US)
  Receive Date: 20121106
  Receipt Date: 20121106
  Transmission Date: 20130627
  Serious: No
  Sender: FDA-Public Use
  Company Number: US-TEVA-368636USA

PATIENT
  Age: 38 Year
  Sex: Female
  Weight: 49.03 kg

DRUGS (2)
  1. PLAN B ONE-STEP [Suspect]
     Indication: POST COITAL CONTRACEPTION
     Dosage: 1.5 Milligram Daily;
     Route: 048
     Dates: start: 20121022, end: 20121022
  2. SPRINTEC [Concomitant]
     Indication: CONTRACEPTION

REACTIONS (3)
  - Migraine [Recovered/Resolved]
  - Hot flush [Recovered/Resolved]
  - Menstruation irregular [Recovered/Resolved]
